FAERS Safety Report 20183776 (Version 1)
Quarter: 2021Q4

REPORT INFORMATION
  Report Type: Spontaneous
  Country: US (occurrence: US)
  Receive Date: 20211214
  Receipt Date: 20211214
  Transmission Date: 20220303
  Serious: Yes (Hospitalization)
  Sender: FDA-Public Use
  Company Number: US-BAYER-2021A262267

PATIENT
  Age: 67 Year
  Sex: Female

DRUGS (3)
  1. BETASERON [Suspect]
     Active Substance: INTERFERON BETA-1B
     Dosage: 0.3 UNK
  2. ASPIRIN [Suspect]
     Active Substance: ASPIRIN
  3. XARELTO [Suspect]
     Active Substance: RIVAROXABAN

REACTIONS (9)
  - Contusion [None]
  - Peripheral swelling [None]
  - Fibrin D dimer increased [None]
  - Epistaxis [Recovered/Resolved]
  - Injection site induration [None]
  - Fall [None]
  - Inappropriate schedule of product administration [None]
  - Product dose omission issue [None]
  - Inappropriate schedule of product administration [None]

NARRATIVE: CASE EVENT DATE: 20210101
